FAERS Safety Report 9247738 (Version 7)
Quarter: 2013Q4

REPORT INFORMATION
  Report Type: Spontaneous
  Country: US (occurrence: US)
  Receive Date: 20130423
  Receipt Date: 20131202
  Transmission Date: 20140711
  Serious: Yes (Hospitalization, Other)
  Sender: FDA-Public Use
  Company Number: US-PFIZER INC-2013125082

PATIENT
  Age: 45 Year
  Sex: Female
  Weight: 110 kg

DRUGS (5)
  1. LYRICA [Suspect]
     Indication: FIBROMYALGIA
     Dosage: 300 MG, 2X/DAY
     Route: 048
     Dates: start: 200507, end: 201307
  2. LYRICA [Suspect]
     Dosage: 200 MG, 3X/DAY
     Route: 048
     Dates: start: 201307, end: 201308
  3. DILANTIN-125 [Suspect]
     Indication: EPILEPSY
     Dosage: UNK
     Dates: start: 200507
  4. DILANTIN-125 [Suspect]
     Indication: CONVULSION
  5. ALEVE [Concomitant]
     Dosage: UNK

REACTIONS (11)
  - Convulsion [Unknown]
  - Fall [Unknown]
  - Jaw fracture [Unknown]
  - Face injury [Unknown]
  - Head injury [Unknown]
  - Facial bones fracture [Unknown]
  - Weight increased [Recovering/Resolving]
  - Epilepsy [Not Recovered/Not Resolved]
  - Anticonvulsant drug level decreased [Unknown]
  - Hunger [Recovering/Resolving]
  - Appetite disorder [Recovering/Resolving]
